FAERS Safety Report 8141327-X (Version None)
Quarter: 2012Q1

REPORT INFORMATION
  Report Type: 
  Country: None (occurrence: None)
  Receive Date: 20120216
  Receipt Date: 20120214
  Transmission Date: 20120608
  Serious: Yes (Life-Threatening, Hospitalization)
  Sender: FDA-Public Use
  Company Number: CA-B.I. PHARMACEUTICALS,INC./RIDGEFIELD-2012-CN-00280CN

PATIENT
  Age: 72 Year
  Sex: Male
  Weight: 93 kg

DRUGS (8)
  1. GALANTAMINE HYDROBROMIDE [Concomitant]
     Route: 048
  2. FLUTICASONE PROPIONATE [Concomitant]
     Route: 055
  3. BETAMETHASONE [Concomitant]
     Route: 065
  4. IPRATROPIUM BROMIDE [Concomitant]
     Route: 055
  5. PHENYTOIN [Concomitant]
     Route: 048
  6. PRADAXA [Suspect]
     Dosage: 300 MG
     Route: 048
  7. CARBAMAZEPINE [Concomitant]
     Route: 065
  8. RABEPRAZOLE SODIUM [Concomitant]
     Route: 048

REACTIONS (4)
  - ANTICOAGULATION DRUG LEVEL BELOW THERAPEUTIC [None]
  - TRANSIENT ISCHAEMIC ATTACK [None]
  - INHIBITORY DRUG INTERACTION [None]
  - THERAPEUTIC RESPONSE DECREASED [None]
